FAERS Safety Report 13840690 (Version 2)
Quarter: 2017Q3

REPORT INFORMATION
  Report Type: Spontaneous
  Country: DE (occurrence: DE)
  Receive Date: 20170807
  Receipt Date: 20170811
  Transmission Date: 20171127
  Serious: Yes (Hospitalization, Disabling, Other)
  Sender: FDA-Public Use
  Company Number: DE-JNJFOC-20170802448

PATIENT
  Age: 65 Year
  Sex: Male
  Weight: 84 kg

DRUGS (10)
  1. FLECAINID ALPHARMA [Concomitant]
     Route: 065
  2. CARVEDILOL. [Concomitant]
     Active Substance: CARVEDILOL
     Route: 065
  3. GABAPENTIN. [Concomitant]
     Active Substance: GABAPENTIN
     Route: 065
  4. ARLEVERT [Concomitant]
     Active Substance: CINNARIZINE\DIMENHYDRINATE
     Dosage: 20/40 MG
     Route: 065
  5. XARELTO [Suspect]
     Active Substance: RIVAROXABAN
     Indication: ATRIAL FIBRILLATION
     Route: 048
     Dates: start: 2012
  6. BROMAZEPAM [Concomitant]
     Active Substance: BROMAZEPAM
     Route: 065
  7. PANTOPRAZOLE [Concomitant]
     Active Substance: PANTOPRAZOLE
     Dosage: HS
     Route: 065
  8. CELEBREX [Concomitant]
     Active Substance: CELECOXIB
     Route: 065
  9. VALSARTAN. [Concomitant]
     Active Substance: VALSARTAN
     Route: 065
  10. XARELTO [Suspect]
     Active Substance: RIVAROXABAN
     Indication: ATRIAL FIBRILLATION
     Route: 048

REACTIONS (7)
  - Hyperhidrosis [Unknown]
  - Fungal test positive [Unknown]
  - Blood pressure increased [Unknown]
  - Off label use [Unknown]
  - Delirium [Unknown]
  - Basilar artery thrombosis [Not Recovered/Not Resolved]
  - Vertebral artery thrombosis [Not Recovered/Not Resolved]

NARRATIVE: CASE EVENT DATE: 201705
